FAERS Safety Report 25101066 (Version 1)
Quarter: 2025Q1

REPORT INFORMATION
  Report Type: Spontaneous
  Country: US (occurrence: US)
  Receive Date: 20250320
  Receipt Date: 20250320
  Transmission Date: 20250408
  Serious: No
  Sender: SMITH AND NEPHEW
  Company Number: US-SMITH AND NEPHEW, INC-2024SMT00034

PATIENT
  Age: 65 Year
  Sex: Female

DRUGS (2)
  1. COLLAGENASE SANTYL [Suspect]
     Active Substance: COLLAGENASE CLOSTRIDIUM HISTOLYTICUM
     Indication: Wound
     Route: 061
     Dates: start: 20240514
  2. CARBOXYMETHYLCELLULOSE SODIUM\SILVER [Suspect]
     Active Substance: CARBOXYMETHYLCELLULOSE SODIUM\SILVER
     Indication: Wound
     Route: 061
     Dates: start: 20240514

REACTIONS (2)
  - Application site pain [Recovering/Resolving]
  - Drug interaction [Unknown]

NARRATIVE: CASE EVENT DATE: 20240514
